FAERS Safety Report 20787136 (Version 1)
Quarter: 2022Q2

REPORT INFORMATION
  Report Type: Spontaneous
  Country: US (occurrence: US)
  Receive Date: 20220505
  Receipt Date: 20220505
  Transmission Date: 20220721
  Serious: No
  Sender: FDA-Public Use
  Company Number: US-BRISTOL-MYERS SQUIBB COMPANY-2022-020193

PATIENT
  Age: 80 Year
  Sex: Female
  Weight: 68.9 kg

DRUGS (13)
  1. REVLIMID [Suspect]
     Active Substance: LENALIDOMIDE
     Indication: Plasma cell myeloma
     Dosage: 21 DAYS ON 7 DAYS OFF
     Route: 048
     Dates: start: 20220222
  2. REVLIMID [Suspect]
     Active Substance: LENALIDOMIDE
     Route: 048
     Dates: start: 20220217
  3. REVLIMID [Suspect]
     Active Substance: LENALIDOMIDE
     Route: 048
     Dates: start: 20220308, end: 20220324
  4. REVLIMID [Suspect]
     Active Substance: LENALIDOMIDE
     Route: 048
     Dates: start: 20220324
  5. ASPIRIN [Concomitant]
     Active Substance: ASPIRIN
     Indication: Plasma cell myeloma
     Dosage: 1 DAILY
     Route: 048
     Dates: start: 20220218
  6. BUSPIRONE HCL [Concomitant]
     Active Substance: BUSPIRONE HYDROCHLORIDE
     Indication: Plasma cell myeloma
     Route: 048
     Dates: start: 20220217
  7. PROBIOTICS NOS [Concomitant]
     Active Substance: PROBIOTICS NOS
     Indication: Plasma cell myeloma
     Route: 048
     Dates: start: 20220217
  8. FLUOXETINE HYDROCHLORIDE [Concomitant]
     Active Substance: FLUOXETINE HYDROCHLORIDE
     Indication: Plasma cell myeloma
     Route: 048
     Dates: start: 20220217
  9. FUROSEMIDE [Concomitant]
     Active Substance: FUROSEMIDE
     Indication: Plasma cell myeloma
     Route: 048
     Dates: start: 20220217
  10. SPIRONOLACTONE [Concomitant]
     Active Substance: SPIRONOLACTONE
     Indication: Plasma cell myeloma
     Route: 048
     Dates: start: 20220217
  11. VITAMIN D3 [Concomitant]
     Active Substance: CHOLECALCIFEROL
     Indication: Plasma cell myeloma
     Route: 048
  12. COLLAGEN [Concomitant]
     Active Substance: COLLAGEN
     Indication: Plasma cell myeloma
     Route: 048
     Dates: start: 20220217
  13. PEPSID AC [Concomitant]
     Indication: Plasma cell myeloma
     Route: 048

REACTIONS (2)
  - Rash [Recovering/Resolving]
  - Off label use [Unknown]

NARRATIVE: CASE EVENT DATE: 20220403
